FAERS Safety Report 6858834-X (Version None)
Quarter: 2010Q3

REPORT INFORMATION
  Report Type: 
  Country: None (occurrence: None)
  Receive Date: 20100719
  Receipt Date: 20080313
  Transmission Date: 20110219
  Serious: Yes (Other)
  Sender: FDA-Public Use
  Company Number: US-PFIZER INC-2008014172

PATIENT
  Sex: Female

DRUGS (3)
  1. CHANTIX [Suspect]
  2. EFFEXOR XR [Concomitant]
  3. TRAZODONE HYDROCHLORIDE [Concomitant]

REACTIONS (3)
  - ANXIETY [None]
  - NIGHTMARE [None]
  - SUICIDAL BEHAVIOUR [None]
